FAERS Safety Report 8362329 (Version 2)
Quarter: 2013Q4

REPORT INFORMATION
  Report Type: Spontaneous
  Country: US (occurrence: US)
  Receive Date: 20120130
  Receipt Date: 20131101
  Transmission Date: 20140711
  Serious: Yes (Hospitalization)
  Sender: FDA-Public Use
  Company Number: US-US-EMD SERONO, INC.-232255J09USA

PATIENT
  Age: 25 Year
  Sex: Male

DRUGS (2)
  1. REBIF [Suspect]
     Indication: MULTIPLE SCLEROSIS
     Route: 058
     Dates: start: 20090422, end: 2012
  2. KEPPRA [Concomitant]
     Indication: CONVULSION
     Route: 048
     Dates: start: 200812

REACTIONS (3)
  - Grand mal convulsion [Recovered/Resolved]
  - Tremor [Recovering/Resolving]
  - Somnolence [Recovering/Resolving]
